FAERS Safety Report 6122910-X (Version None)
Quarter: 2009Q1

REPORT INFORMATION
  Report Type: 
  Country: None (occurrence: None)
  Receive Date: 20090318
  Receipt Date: 20080611
  Transmission Date: 20090719
  Serious: No
  Sender: FDA-Public Use
  Company Number: US-AMGEN-KDL284764

PATIENT
  Sex: Male
  Weight: 126.7 kg

DRUGS (26)
  1. NEULASTA [Suspect]
     Indication: CHEMOTHERAPY
     Route: 058
     Dates: start: 20080516
  2. DEXAMETHASONE TAB [Concomitant]
     Route: 042
     Dates: start: 20080606
  3. RITUXIMAB [Concomitant]
     Route: 042
     Dates: start: 20080606
  4. VINCRISTINE [Concomitant]
     Route: 042
     Dates: start: 20080606
  5. DOXORUBICIN HCL [Concomitant]
     Route: 042
     Dates: start: 20080606
  6. CYCLOPHOSPHAMIDE [Concomitant]
     Route: 042
     Dates: start: 20080606
  7. TYLENOL [Concomitant]
     Route: 048
     Dates: start: 20080606
  8. BENADRYL [Concomitant]
     Route: 048
     Dates: start: 20080606
  9. EMEND [Concomitant]
     Route: 048
     Dates: start: 20080606
  10. ALOXI [Concomitant]
     Route: 042
     Dates: start: 20080606
  11. LORAZEPAM [Concomitant]
     Route: 048
     Dates: start: 20080529
  12. PREDNISONE [Concomitant]
     Route: 048
     Dates: start: 20080327
  13. EMEND [Concomitant]
     Route: 048
     Dates: start: 20080418
  14. HEPARIN [Concomitant]
     Route: 042
     Dates: start: 20080606
  15. COMPAZINE [Concomitant]
     Route: 048
     Dates: start: 20080606
  16. REGLAN [Concomitant]
     Route: 048
     Dates: start: 20080529
  17. ALLOPURINOL [Concomitant]
     Route: 048
     Dates: start: 20080327
  18. ADVAIR HFA [Concomitant]
     Route: 045
     Dates: start: 20080327
  19. ZYRTEC [Concomitant]
     Route: 048
     Dates: start: 20080327
  20. NORVASC [Concomitant]
     Route: 048
     Dates: start: 20080327
  21. TRICOR [Concomitant]
     Route: 048
     Dates: start: 20080327
  22. CYMBALTA [Concomitant]
     Route: 048
     Dates: start: 20080327
  23. SINGULAIR [Concomitant]
     Route: 048
     Dates: start: 20080327
  24. DARVOCET-N 100 [Concomitant]
     Route: 048
     Dates: start: 20080327
  25. METOCLOPRAMIDE HYDROCHLORIDE [Concomitant]
     Route: 048
     Dates: start: 20080418
  26. PREVACID [Concomitant]
     Route: 048
     Dates: start: 20080508

REACTIONS (2)
  - BACK PAIN [None]
  - MUSCLE SPASMS [None]
